FAERS Safety Report 24268118 (Version 1)
Quarter: 2024Q3

REPORT INFORMATION
  Report Type: Spontaneous
  Country: BR (occurrence: None)
  Receive Date: 20240830
  Receipt Date: 20240830
  Transmission Date: 20241017
  Serious: Yes (Other)
  Sender: ASTRAZENECA
  Company Number: 2024A196492

PATIENT
  Sex: Female

DRUGS (4)
  1. XIGDUO XR [Suspect]
     Active Substance: DAPAGLIFLOZIN PROPANEDIOL\METFORMIN HYDROCHLORIDE
     Indication: Blood triglycerides abnormal
     Route: 048
  2. XIGDUO XR [Suspect]
     Active Substance: DAPAGLIFLOZIN PROPANEDIOL\METFORMIN HYDROCHLORIDE
     Indication: Blood cholesterol abnormal
     Route: 048
  3. ZINPASS [Concomitant]
     Indication: Blood triglycerides abnormal
  4. ZINPASS [Concomitant]
     Indication: Blood cholesterol abnormal

REACTIONS (4)
  - Dementia Alzheimer^s type [Unknown]
  - Memory impairment [Unknown]
  - Hypotension [Unknown]
  - Off label use [Not Recovered/Not Resolved]
